FAERS Safety Report 19389540 (Version 2)
Quarter: 2021Q2

REPORT INFORMATION
  Report Type: Spontaneous
  Country: US (occurrence: US)
  Receive Date: 20210608
  Receipt Date: 20210615
  Transmission Date: 20210717
  Serious: Yes (Other)
  Sender: FDA-Public Use
  Company Number: US-PFIZER INC-2021632254

PATIENT
  Age: 46 Year
  Sex: Female

DRUGS (1)
  1. DELATESTRYL [Suspect]
     Active Substance: TESTOSTERONE ENANTHATE
     Indication: TRANSGENDER HORMONAL THERAPY
     Dosage: UNK
     Dates: start: 2001

REACTIONS (3)
  - Endometrial adenocarcinoma [Recovered/Resolved]
  - Ovarian cancer stage II [Recovered/Resolved]
  - Teratoma [Recovered/Resolved]
